FAERS Safety Report 11176713 (Version 1)
Quarter: 2015Q2

REPORT INFORMATION
  Report Type: Spontaneous
  Country: US (occurrence: None)
  Receive Date: 20150609
  Receipt Date: 20150609
  Transmission Date: 20150821
  Serious: Yes (Other)
  Sender: FDA-Public Use
  Company Number: None

PATIENT
  Age: 55 Year
  Sex: Female
  Weight: 51.71 kg

DRUGS (1)
  1. ADALIMUMAB ABBVIE INC [Suspect]
     Active Substance: ADALIMUMAB
     Indication: RHEUMATOID ARTHRITIS
     Route: 058
     Dates: start: 20140130, end: 20140602

REACTIONS (4)
  - Pruritus [None]
  - Skin lesion [None]
  - Injection site reaction [None]
  - Erythema [None]

NARRATIVE: CASE EVENT DATE: 20140602
